FAERS Safety Report 18286219 (Version 1)
Quarter: 2020Q3

REPORT INFORMATION
  Report Type: Spontaneous
  Country: DE (occurrence: DE)
  Receive Date: 20200919
  Receipt Date: 20200919
  Transmission Date: 20201103
  Serious: Yes (Other)
  Sender: FDA-Public Use
  Company Number: DE-INCYTE CORPORATION-2020IN009016

PATIENT

DRUGS (1)
  1. JAKAVI [Suspect]
     Active Substance: RUXOLITINIB
     Indication: LEUKAEMIA
     Dosage: 15 MG, BID
     Route: 048
     Dates: start: 20200207

REACTIONS (3)
  - Meningococcal infection [Recovered/Resolved]
  - Product use in unapproved indication [Unknown]
  - Varicella [Recovered/Resolved]
